FAERS Safety Report 9742159 (Version 1)
Quarter: 2013Q4

REPORT INFORMATION
  Report Type: Spontaneous
  Country: BR (occurrence: BR)
  Receive Date: 20131210
  Receipt Date: 20131210
  Transmission Date: 20140711
  Serious: Yes (Hospitalization)
  Sender: FDA-Public Use
  Company Number: PHHY2013BR144223

PATIENT
  Age: 82 Year
  Sex: Female

DRUGS (2)
  1. DIOVAN AMLO FIX [Suspect]
     Indication: CARDIAC DISORDER
     Dosage: 1 DF(160/5 MG), DAILY
     Route: 048
  2. DIOVAN AMLO FIX [Suspect]
     Indication: OFF LABEL USE

REACTIONS (3)
  - Appendicitis [Not Recovered/Not Resolved]
  - Hypoacusis [Not Recovered/Not Resolved]
  - Crying [Not Recovered/Not Resolved]
